FAERS Safety Report 4277490-0 (Version None)
Quarter: 2004Q1

REPORT INFORMATION
  Report Type: 
  Country: None (occurrence: None)
  Receive Date: 20040122
  Receipt Date: 20031014
  Transmission Date: 20041129
  Serious: Yes (Hospitalization)
  Sender: FDA-Public Use
  Company Number: US-BRISTOL-MYERS SQUIBB COMPANY-12411815

PATIENT
  Age: 28 Year
  Sex: Male
  Weight: 73 kg

DRUGS (4)
  1. ABILIFY [Suspect]
     Indication: BIPOLAR DISORDER
     Dosage: INITIAL DOSAGE WAS 7.5MG DAILY (19-JUN), INCREASED TO 7.5MG BID ON 09-JUL-2003.
     Route: 048
     Dates: start: 20030619, end: 20030701
  2. SEROQUEL [Concomitant]
     Dosage: ON 19-JUN-2003 DOSAGE WAS DECREASED TO 100 MG DAILY AND D/C ON 09-JUL-2003.
     Dates: end: 20030709
  3. ZYRTEC [Concomitant]
  4. ATIVAN [Concomitant]

REACTIONS (7)
  - ALTERED VISUAL DEPTH PERCEPTION [None]
  - DISORIENTATION [None]
  - DIZZINESS [None]
  - EXTRAPYRAMIDAL DISORDER [None]
  - HYPERHIDROSIS [None]
  - HYPERSENSITIVITY [None]
  - INCOHERENT [None]
